FAERS Safety Report 7067768-X (Version None)
Quarter: 2010Q4

REPORT INFORMATION
  Report Type: 
  Country: None (occurrence: None)
  Receive Date: 20101028
  Receipt Date: 20100127
  Transmission Date: 20110411
  Serious: No
  Sender: FDA-Public Use
  Company Number: A0841691A

PATIENT
  Sex: Female

DRUGS (8)
  1. SEREVENT [Suspect]
     Indication: CHRONIC OBSTRUCTIVE PULMONARY DISEASE
     Dosage: 1PUFF TWICE PER DAY
     Route: 055
     Dates: start: 20090901
  2. QVAR 40 [Concomitant]
  3. NITRO-BID [Concomitant]
  4. VERELAN [Concomitant]
  5. LASIX [Concomitant]
  6. SYNTHROID [Concomitant]
  7. ASPIRIN [Concomitant]
  8. ATACAND [Concomitant]

REACTIONS (1)
  - DYSPHONIA [None]
